FAERS Safety Report 20818471 (Version 1)
Quarter: 2022Q2

REPORT INFORMATION
  Report Type: Spontaneous
  Country: US (occurrence: US)
  Receive Date: 20220512
  Receipt Date: 20220512
  Transmission Date: 20220721
  Serious: No
  Sender: FDA-Public Use
  Company Number: US-TEVA-2022-US-2027921

PATIENT
  Age: 16 Year
  Sex: Male

DRUGS (2)
  1. METRONIDAZOLE [Suspect]
     Active Substance: METRONIDAZOLE
     Dosage: 500 MILLIGRAM DAILY; ONE TABLET DAILY
     Route: 065
     Dates: start: 20220408
  2. METRONIDAZOLE [Suspect]
     Active Substance: METRONIDAZOLE
     Dosage: 2000 MILLIGRAM DAILY; FOUR TABLETS DAILY
     Route: 065

REACTIONS (1)
  - Chromaturia [Unknown]
